FAERS Safety Report 4648437-X (Version None)
Quarter: 2005Q2

REPORT INFORMATION
  Report Type: 
  Country: None (occurrence: None)
  Receive Date: 20050427
  Receipt Date: 20050407
  Transmission Date: 20051028
  Serious: Yes (Other)
  Sender: FDA-Public Use
  Company Number: EWC050343087

PATIENT
  Age: 83 Year
  Sex: Female

DRUGS (3)
  1. FORTEO [Suspect]
     Indication: OSTEOPOROSIS
     Dosage: 20 UG DAY/1 DAY
     Dates: start: 20041013, end: 20050228
  2. STILNOCT (ZOLPIDEM TARTRATE) [Concomitant]
  3. ALVEDON (PARACETAMOL) [Concomitant]

REACTIONS (1)
  - MYOCARDIAL INFARCTION [None]
